FAERS Safety Report 17160637 (Version 1)
Quarter: 2019Q4

REPORT INFORMATION
  Report Type: Spontaneous
  Country: DE (occurrence: DE)
  Receive Date: 20191216
  Receipt Date: 20191216
  Transmission Date: 20200122
  Serious: Yes (Death, Other)
  Sender: FDA-Public Use
  Company Number: DE-MYLANLABS-2019M1123010

PATIENT
  Age: 30 Year
  Sex: Male

DRUGS (2)
  1. LOPINAVIR + RITONAVIR [Concomitant]
     Active Substance: LOPINAVIR\RITONAVIR
     Dosage: UNK
  2. EMTRICITABINE/TENOFOVIR DISOPROXIL FUMARATE [Suspect]
     Active Substance: EMTRICITABINE\TENOFOVIR DISOPROXIL FUMARATE
     Indication: HIV INFECTION
     Dosage: UNK
     Route: 065
     Dates: start: 200910

REACTIONS (5)
  - Pneumocystis jirovecii pneumonia [Unknown]
  - Skin ulcer [Unknown]
  - Pneumonia cytomegaloviral [Unknown]
  - Anaplastic large-cell lymphoma [Fatal]
  - Oesophageal candidiasis [Unknown]

NARRATIVE: CASE EVENT DATE: 201108
